FAERS Safety Report 9507845 (Version 1)
Quarter: 2013Q1

REPORT INFORMATION
  Report Type: Spontaneous
  Country: US (occurrence: None)
  Receive Date: 20130305
  Receipt Date: 20130305
  Transmission Date: 20140127
  Serious: Yes (Disabling, Other)
  Sender: FDA-Public Use
  Company Number: 163-21880-12030517

PATIENT
  Age: 73 Year
  Sex: Female

DRUGS (6)
  1. REVLIMID [Suspect]
     Indication: MYELODYSPLASTIC SYNDROME
     Dosage: 5 MG, 1 IN 1 D, PO
     Route: 048
     Dates: start: 200811, end: 20120301
  2. PRISTIQ (DESVENLAFAXINSUCCINATE) (UNKNOWN) [Concomitant]
  3. HYZAAR (HYZAAR) (UNKNOWN) [Concomitant]
  4. TOPROL XL (METOPROLOL SUCCINATE) (UNKNOWN) [Concomitant]
  5. OMEPRAZOLE (OMEPRAZOLE) (UNKNOWN) [Concomitant]
  6. JANUVIA (SITAGLIPTIN PHOSPHATE) (UNKNOWN) [Concomitant]

REACTIONS (3)
  - Pancytopenia [None]
  - Myelodysplastic syndrome [None]
  - Disease progression [None]
